FAERS Safety Report 7588061-2 (Version None)
Quarter: 2011Q3

REPORT INFORMATION
  Report Type: 
  Country: None (occurrence: None)
  Receive Date: 20110705
  Receipt Date: 20110629
  Transmission Date: 20111222
  Serious: No
  Sender: FDA-Public Use
  Company Number: US-PFIZER INC-2011145585

PATIENT
  Sex: Male
  Weight: 65.76 kg

DRUGS (7)
  1. DOXEPIN [Interacting]
     Dosage: UNK
  2. LITHIUM CARBONATE [Interacting]
     Dosage: UNK
  3. CELEBREX [Suspect]
     Indication: INFLAMMATION
     Dosage: 200 MG, 1X/DAY
     Route: 048
     Dates: start: 20110625
  4. DEPAKOTE [Interacting]
     Dosage: UNK
  5. HUMIRA [Concomitant]
     Indication: ARTHRITIS
     Dosage: UNK
  6. STRATTERA [Interacting]
     Dosage: UNK
  7. SYNTHROID [Interacting]
     Dosage: UNK

REACTIONS (2)
  - OEDEMA PERIPHERAL [None]
  - DRUG INTERACTION [None]
